FAERS Safety Report 7520432-2 (Version None)
Quarter: 2011Q2

REPORT INFORMATION
  Report Type: 
  Country: None (occurrence: None)
  Receive Date: 20110602
  Receipt Date: 20110527
  Transmission Date: 20111010
  Serious: Yes (Disabling)
  Sender: FDA-Public Use
  Company Number: FR-MERCK-1105USA04204

PATIENT
  Age: 12 Year
  Sex: Male

DRUGS (1)
  1. STROMECTOL [Suspect]
     Indication: ACARODERMATITIS
     Route: 048
     Dates: start: 20110123, end: 20110123

REACTIONS (3)
  - OEDEMA PERIPHERAL [None]
  - DERMATITIS BULLOUS [None]
  - ERYTHEMA MULTIFORME [None]
